FAERS Safety Report 6812700-4 (Version None)
Quarter: 2010Q3

REPORT INFORMATION
  Report Type: 
  Country: None (occurrence: None)
  Receive Date: 20100701
  Receipt Date: 20100618
  Transmission Date: 20110219
  Serious: Yes (Hospitalization, Disabling)
  Sender: FDA-Public Use
  Company Number: A0729297A

PATIENT
  Age: 56 Year
  Sex: Male
  Weight: 91.8 kg

DRUGS (5)
  1. AVANDIA [Suspect]
     Route: 048
     Dates: start: 20050621, end: 20070401
  2. GLUCOPHAGE [Concomitant]
  3. GLYBURIDE [Concomitant]
  4. GLYNASE [Concomitant]
  5. VERAPAMIL [Concomitant]

REACTIONS (2)
  - CORONARY ARTERY DISEASE [None]
  - MYOCARDIAL INFARCTION [None]
